FAERS Safety Report 7288168-3 (Version None)
Quarter: 2011Q1

REPORT INFORMATION
  Report Type: 
  Country: None (occurrence: None)
  Receive Date: 20110207
  Receipt Date: 20110207
  Transmission Date: 20110831
  Serious: No
  Sender: FDA-Public Use
  Company Number: None

PATIENT
  Sex: Female

DRUGS (6)
  1. DEXAMETHASONE [Concomitant]
  2. TEMAZEPAM [Concomitant]
  3. OXYBUTYNIN [Concomitant]
  4. VELCADE [Concomitant]
  5. REVLIMID [Suspect]
     Indication: MULTIPLE MYELOMA
     Dosage: 15MG #14 CAPSULES EVERY DAY X 14D ORAL
     Route: 048
     Dates: start: 20110111
  6. PROCHLORPERAZINE [Concomitant]

REACTIONS (1)
  - RASH [None]
